FAERS Safety Report 22210177 (Version 3)
Quarter: 2023Q2

REPORT INFORMATION
  Report Type: Spontaneous
  Country: US (occurrence: US)
  Receive Date: 20230414
  Receipt Date: 20230516
  Transmission Date: 20230722
  Serious: No
  Sender: FDA-Public Use
  Company Number: US-ELI_LILLY_AND_COMPANY-US202304005124

PATIENT
  Sex: Male

DRUGS (6)
  1. MOUNJARO [Interacting]
     Active Substance: TIRZEPATIDE
     Indication: Diabetes prophylaxis
     Dosage: 2.5 MG, UNKNOWN
     Route: 058
     Dates: start: 202301
  2. MOUNJARO [Interacting]
     Active Substance: TIRZEPATIDE
     Indication: Weight increased
     Dosage: 5 MG, UNKNOWN
     Route: 058
  3. MOUNJARO [Interacting]
     Active Substance: TIRZEPATIDE
     Dosage: 7.5 MG, UNKNOWN
     Route: 058
  4. MOUNJARO [Interacting]
     Active Substance: TIRZEPATIDE
     Dosage: 12.5 MG, UNKNOWN
     Route: 058
  5. VALSARTAN [Interacting]
     Active Substance: VALSARTAN
     Indication: Blood pressure increased
     Dosage: 160 MG, DAILY
     Route: 065
  6. EFFEXOR [Interacting]
     Active Substance: VENLAFAXINE HYDROCHLORIDE
     Indication: Anxiety
     Dosage: 75 MG, DAILY
     Route: 065

REACTIONS (9)
  - Inappropriate schedule of product administration [Unknown]
  - Drug interaction [Unknown]
  - Off label use [Unknown]
  - Weight increased [Unknown]
  - Flatulence [Unknown]
  - Abdominal distension [Unknown]
  - Dyspepsia [Unknown]
  - Nausea [Unknown]
  - Eructation [Unknown]
